FAERS Safety Report 18512956 (Version 2)
Quarter: 2020Q4

REPORT INFORMATION
  Report Type: Spontaneous
  Country: US (occurrence: US)
  Receive Date: 20201117
  Receipt Date: 20201204
  Transmission Date: 20210114
  Serious: No
  Sender: FDA-Public Use
  Company Number: US-PFIZER INC-2018468013

PATIENT
  Age: 65 Year
  Sex: Male
  Weight: 70.76 kg

DRUGS (1)
  1. RAPAMUNE [Suspect]
     Active Substance: SIROLIMUS
     Indication: HEART TRANSPLANT
     Dosage: 4 MG, DAILY (TAKE 4 TABLETS DAILY)
     Route: 048

REACTIONS (1)
  - Off label use [Unknown]
